FAERS Safety Report 12163068 (Version 1)
Quarter: 2016Q1

REPORT INFORMATION
  Report Type: Spontaneous
  Country: US (occurrence: US)
  Receive Date: 20160309
  Receipt Date: 20160309
  Transmission Date: 20160526
  Serious: No
  Sender: FDA-Public Use
  Company Number: US-ROCHE-1539172

PATIENT
  Sex: Female

DRUGS (3)
  1. GABAPENTIN. [Concomitant]
     Active Substance: GABAPENTIN
  2. CLOBETASOL [Concomitant]
     Active Substance: CLOBETASOL
  3. XOLAIR [Suspect]
     Active Substance: OMALIZUMAB
     Indication: ASTHMA
     Route: 065
     Dates: start: 201410

REACTIONS (6)
  - Fatigue [Unknown]
  - Pain [Unknown]
  - Ear pain [Unknown]
  - Headache [Unknown]
  - Gastrointestinal disorder [Unknown]
  - Malaise [Unknown]
